FAERS Safety Report 10219997 (Version 3)
Quarter: 2014Q3

REPORT INFORMATION
  Report Type: Spontaneous
  Country: US (occurrence: US)
  Receive Date: 20140605
  Receipt Date: 20140722
  Transmission Date: 20150326
  Serious: Yes (Other)
  Sender: FDA-Public Use
  Company Number: PHHY2013US129467

PATIENT
  Sex: Female

DRUGS (6)
  1. LIORESAL [Suspect]
     Active Substance: BACLOFEN
     Indication: MUSCLE SPASTICITY
     Dosage: 362.1 UG, DAY
     Route: 037
  2. LIORESAL [Suspect]
     Active Substance: BACLOFEN
     Dosage: 100 UG, DAY
     Route: 037
  3. KEPPRA [Suspect]
     Active Substance: LEVETIRACETAM
     Dosage: UNK UKN, UNK
  4. LIORESAL [Suspect]
     Active Substance: BACLOFEN
     Dosage: UNK UKN, UNK
  5. TRILEPTAL [Suspect]
     Active Substance: OXCARBAZEPINE
     Dosage: UNK UKN, UNK
  6. ROBINUL [Suspect]
     Active Substance: GLYCOPYRROLATE
     Dosage: UNK UKN, UNK

REACTIONS (8)
  - Hypotonia [Recovered/Resolved]
  - Drug withdrawal syndrome [Recovered/Resolved]
  - Muscle twitching [Recovered/Resolved]
  - Muscle tightness [Recovered/Resolved]
  - Dyspnoea [Recovered/Resolved]
  - Facial asymmetry [Recovered/Resolved]
  - Convulsion [Recovered/Resolved]
  - Aphasia [Recovered/Resolved]
